FAERS Safety Report 13556656 (Version 1)
Quarter: 2017Q2

REPORT INFORMATION
  Report Type: Spontaneous
  Country: US (occurrence: US)
  Receive Date: 20170517
  Receipt Date: 20170517
  Transmission Date: 20170830
  Serious: No
  Sender: FDA-Public Use
  Company Number: None

PATIENT
  Age: 20 Year
  Sex: Female
  Weight: 79.45 kg

DRUGS (2)
  1. REMICADE [Suspect]
     Active Substance: INFLIXIMAB
     Indication: SPONDYLOARTHROPATHY
     Dosage: 300MG EVERY 6 WEEKS IV
     Route: 042
     Dates: start: 20170111, end: 20170111
  2. REMICADE [Suspect]
     Active Substance: INFLIXIMAB
     Indication: ARTHRITIS
     Dosage: 300MG EVERY 6 WEEKS IV
     Route: 042
     Dates: start: 20170210, end: 20170210

REACTIONS (6)
  - Adverse reaction [None]
  - Nausea [None]
  - Vomiting [None]
  - Dysphagia [None]
  - Chest discomfort [None]
  - Infusion related reaction [None]

NARRATIVE: CASE EVENT DATE: 20170210
